FAERS Safety Report 9118315 (Version 1)
Quarter: 2013Q1

REPORT INFORMATION
  Report Type: Spontaneous
  Country: US (occurrence: None)
  Receive Date: 20130221
  Receipt Date: 20130221
  Transmission Date: 20140127
  Serious: Yes (Hospitalization)
  Sender: FDA-Public Use
  Company Number: None

PATIENT
  Age: 17 Year
  Sex: Male
  Weight: 27.22 kg

DRUGS (2)
  1. MINOCYCLINE 100 MG [Suspect]
     Indication: ACNE
     Route: 048
     Dates: start: 20130114, end: 20130127
  2. TETRACYCLINE [Suspect]
     Indication: ACNE
     Route: 048
     Dates: start: 20130114, end: 20130127

REACTIONS (25)
  - Headache [None]
  - Neck pain [None]
  - Loss of consciousness [None]
  - Presyncope [None]
  - Dizziness [None]
  - Dizziness [None]
  - Pyrexia [None]
  - Rash [None]
  - Drug eruption [None]
  - Dermatitis contact [None]
  - Urticaria [None]
  - Perivascular dermatitis [None]
  - International normalised ratio increased [None]
  - Alanine aminotransferase increased [None]
  - White blood cell count increased [None]
  - Rash pruritic [None]
  - Hypotension [None]
  - Drug reaction with eosinophilia and systemic symptoms [None]
  - Renal failure acute [None]
  - Renal tubular necrosis [None]
  - Inflammation [None]
  - Aspartate aminotransferase increased [None]
  - Blood alkaline phosphatase increased [None]
  - Splenic lesion [None]
  - Bandaemia [None]
